FAERS Safety Report 11078315 (Version 1)
Quarter: 2015Q2

REPORT INFORMATION
  Report Type: Spontaneous
  Country: US (occurrence: None)
  Receive Date: 20150429
  Receipt Date: 20150429
  Transmission Date: 20150821
  Serious: Yes (Disabling)
  Sender: FDA-Public Use
  Company Number: None

PATIENT
  Age: 57 Year
  Sex: Female
  Weight: 68.04 kg

DRUGS (4)
  1. LISINOPRIL. [Concomitant]
     Active Substance: LISINOPRIL
  2. ONE-A-DAY NOS [Concomitant]
     Active Substance: MINERALS\VITAMINS
  3. TOPROL XL [Concomitant]
     Active Substance: METOPROLOL SUCCINATE
  4. LEVAQUIN [Suspect]
     Active Substance: LEVOFLOXACIN
     Indication: LOWER RESPIRATORY TRACT INFECTION
     Dosage: 1
     Route: 048

REACTIONS (5)
  - Pain in extremity [None]
  - Abasia [None]
  - Myalgia [None]
  - Joint range of motion decreased [None]
  - Arthralgia [None]

NARRATIVE: CASE EVENT DATE: 20150418
